FAERS Safety Report 20638683 (Version 1)
Quarter: 2022Q1

REPORT INFORMATION
  Report Type: Spontaneous
  Country: AU (occurrence: AU)
  Receive Date: 20220325
  Receipt Date: 20220325
  Transmission Date: 20220424
  Serious: Yes (Other)
  Sender: FDA-Public Use
  Company Number: AU-NAPPMUNDI-GBR-2022-0096216

PATIENT
  Sex: Female

DRUGS (5)
  1. NORSPAN [Suspect]
     Active Substance: BUPRENORPHINE
     Indication: Spinal cord injury
     Dosage: 5 MCG, Q1H (1 PATCH WEEKLY)
     Route: 062
  2. NORSPAN [Suspect]
     Active Substance: BUPRENORPHINE
     Dosage: 10 MCG, Q1H
     Route: 062
  3. NORSPAN [Suspect]
     Active Substance: BUPRENORPHINE
     Dosage: 15 MCG, Q1H
     Route: 062
  4. NORSPAN [Suspect]
     Active Substance: BUPRENORPHINE
     Dosage: 10 MCG, Q1H
     Route: 062
  5. IRBESARTAN [Concomitant]
     Active Substance: IRBESARTAN
     Indication: Hypertension
     Dosage: 300 MG, UNK
     Route: 065

REACTIONS (3)
  - Cardiac failure [Not Recovered/Not Resolved]
  - Illness [Not Recovered/Not Resolved]
  - Dizziness [Not Recovered/Not Resolved]
